FAERS Safety Report 18642452 (Version 2)
Quarter: 2020Q4

REPORT INFORMATION
  Report Type: Spontaneous
  Country: ES (occurrence: ES)
  Receive Date: 20201221
  Receipt Date: 20201230
  Transmission Date: 20210114
  Serious: Yes (Hospitalization, Other)
  Sender: FDA-Public Use
  Company Number: NVSC2020ES333277

PATIENT
  Age: 21 Year
  Sex: Male

DRUGS (2)
  1. TACROLIMUS. [Suspect]
     Active Substance: TACROLIMUS
     Indication: STEM CELL TRANSPLANT
     Dosage: UNK
     Route: 065
  2. RUXOLITINIB [Concomitant]
     Active Substance: RUXOLITINIB
     Indication: PRODUCT USED FOR UNKNOWN INDICATION
     Dosage: UNK
     Route: 065

REACTIONS (11)
  - Product use in unapproved indication [Unknown]
  - Post procedural haematoma [Recovering/Resolving]
  - Cytomegalovirus viraemia [Unknown]
  - Respiratory tract infection viral [Unknown]
  - Oxygen saturation decreased [Unknown]
  - Cough [Unknown]
  - Condition aggravated [Unknown]
  - Haemoptysis [Unknown]
  - Glomerulonephritis [Unknown]
  - Obstructive airways disorder [Unknown]
  - Cytomegalovirus urinary tract infection [Unknown]
